FAERS Safety Report 5525620-2 (Version None)
Quarter: 2007Q4

REPORT INFORMATION
  Report Type: 
  Country: None (occurrence: None)
  Receive Date: 20071120
  Receipt Date: 20071120
  Transmission Date: 20080405
  Serious: Yes (Other)
  Sender: FDA-Public Use
  Company Number: None

PATIENT
  Age: 45 Year
  Sex: Male
  Weight: 86.1834 kg

DRUGS (1)
  1. REQUIP [Suspect]
     Indication: PARKINSON'S DISEASE
     Dosage: 5MG 3X DAILY PO
     Route: 048
     Dates: start: 20040201, end: 20071119

REACTIONS (9)
  - AMNESIA [None]
  - CONFUSIONAL STATE [None]
  - ECONOMIC PROBLEM [None]
  - GAMBLING [None]
  - HIGH RISK SEXUAL BEHAVIOUR [None]
  - HYPERSEXUALITY [None]
  - PARTNER STRESS [None]
  - SEXUAL RELATIONSHIP CHANGE [None]
  - SLEEP ATTACKS [None]
